FAERS Safety Report 15443835 (Version 1)
Quarter: 2018Q3

REPORT INFORMATION
  Report Type: Spontaneous
  Country: CA (occurrence: CA)
  Receive Date: 20180928
  Receipt Date: 20180928
  Transmission Date: 20181010
  Serious: Yes (Death, Hospitalization)
  Sender: FDA-Public Use
  Company Number: CA-PFIZER INC-2018386529

PATIENT
  Age: 59 Year
  Sex: Female
  Weight: 113.2 kg

DRUGS (9)
  1. CYCLOPHOSPHAMIDE. [Suspect]
     Active Substance: CYCLOPHOSPHAMIDE
     Indication: NEOADJUVANT THERAPY
     Dosage: 3 CYCLES
     Dates: start: 201607
  2. SYNTHROID [Concomitant]
     Active Substance: LEVOTHYROXINE SODIUM
     Indication: HYPOTHYROIDISM
     Dosage: 150?175 MG, DAILY
     Route: 048
     Dates: start: 200805
  3. FLUOROURACIL. [Suspect]
     Active Substance: FLUOROURACIL
     Dosage: 3 CYCLES
     Dates: start: 201607
  4. ARTHROTEC [Concomitant]
     Active Substance: DICLOFENAC SODIUM\MISOPROSTOL
     Indication: PAIN
     Dosage: UNK UNK, 2X/DAY PRN (AS NEEDED)
     Route: 048
     Dates: start: 200805
  5. EPIRUBICIN HCL [Suspect]
     Active Substance: EPIRUBICIN HYDROCHLORIDE
     Indication: NEOADJUVANT THERAPY
     Dosage: 3 CYCLES
     Dates: start: 201607
  6. LATANOPROST. [Concomitant]
     Active Substance: LATANOPROST
     Indication: GLAUCOMA
     Dosage: UNK
     Dates: start: 201405
  7. QUETIAPINE. [Concomitant]
     Active Substance: QUETIAPINE
     Indication: MOOD ALTERED
     Dosage: 25 MG, 3X/DAY
     Route: 048
     Dates: start: 200806
  8. DOCETAXEL. [Suspect]
     Active Substance: DOCETAXEL
     Dosage: 3 CYCLES
     Dates: start: 201607
  9. SERTRALINE [Concomitant]
     Active Substance: SERTRALINE HYDROCHLORIDE
     Indication: DEPRESSION
     Dosage: 200 MG, DAILY
     Route: 048
     Dates: start: 200805

REACTIONS (6)
  - Neoplasm progression [Fatal]
  - Fall [Unknown]
  - Headache [Unknown]
  - Muscular weakness [Unknown]
  - Pain [Unknown]
  - Nausea [Unknown]
